FAERS Safety Report 4757385-6 (Version None)
Quarter: 2005Q3

REPORT INFORMATION
  Report Type: 
  Country: None (occurrence: None)
  Receive Date: 20050829
  Receipt Date: 20050816
  Transmission Date: 20060218
  Serious: Yes (Hospitalization)
  Sender: FDA-Public Use
  Company Number: 8011385

PATIENT
  Age: 34 Year
  Sex: Male
  Weight: 87.5 kg

DRUGS (4)
  1. KEPPRA [Suspect]
     Indication: PARTIAL SEIZURES
     Dosage: PO
     Route: 048
     Dates: start: 20040101
  2. KEPPRA [Suspect]
     Indication: PARTIAL SEIZURES
     Dosage: 1500 MG 2/D PO
     Route: 048
  3. KEPPRA [Suspect]
     Indication: PARTIAL SEIZURES
     Dosage: 1125 MG 2/D PO
     Route: 048
  4. HERBAL SUPPLEMENT WHICH DID NOT CONTAIN EPHEDRINE [Concomitant]

REACTIONS (2)
  - CHEST PAIN [None]
  - PULMONARY EMBOLISM [None]
